FAERS Safety Report 8164450-2 (Version None)
Quarter: 2012Q1

REPORT INFORMATION
  Report Type: 
  Country: None (occurrence: None)
  Receive Date: 20120224
  Receipt Date: 20120216
  Transmission Date: 20120608
  Serious: Yes (Other)
  Sender: FDA-Public Use
  Company Number: GB-ALLERGAN-1202364US

PATIENT
  Age: 85 Year

DRUGS (3)
  1. LUMIGAN [Suspect]
     Indication: GLAUCOMA
     Route: 047
  2. XALATAN [Suspect]
     Indication: GLAUCOMA
     Dosage: UNK
     Route: 031
     Dates: start: 20110111, end: 20110212
  3. TAMSULOSIN HCL [Concomitant]
     Dosage: 400 A?G, BID

REACTIONS (3)
  - AGITATION [None]
  - ANXIETY [None]
  - MOOD ALTERED [None]
